FAERS Safety Report 6731567-6 (Version None)
Quarter: 2010Q2

REPORT INFORMATION
  Report Type: 
  Country: None (occurrence: None)
  Receive Date: 20100519
  Receipt Date: 20100510
  Transmission Date: 20101027
  Serious: No
  Sender: FDA-Public Use
  Company Number: US-BIOGENIDEC-2010BI016095

PATIENT
  Sex: Female

DRUGS (2)
  1. AVONEX [Suspect]
     Indication: MULTIPLE SCLEROSIS
     Route: 030
     Dates: start: 20041202, end: 20070903
  2. AVONEX [Suspect]
     Route: 030
     Dates: start: 20080901

REACTIONS (2)
  - BLADDER DISORDER [None]
  - MULTIPLE SCLEROSIS RELAPSE [None]
